FAERS Safety Report 7078149-7 (Version None)
Quarter: 2010Q4

REPORT INFORMATION
  Report Type: 
  Country: None (occurrence: None)
  Receive Date: 20101101
  Receipt Date: 20101101
  Transmission Date: 20110411
  Serious: Yes (Other)
  Sender: FDA-Public Use
  Company Number: None

PATIENT
  Age: 8 Year
  Sex: Male
  Weight: 35.3 kg

DRUGS (2)
  1. GAMUNEX [Suspect]
     Indication: KAWASAKI'S DISEASE
     Dosage: 62 GRAMS ONCE IV
     Route: 042
     Dates: start: 20100530, end: 20100530
  2. GAMUNEX [Suspect]
     Dosage: 62 GRAMS ONCE IV
     Route: 042
     Dates: start: 20100602, end: 20100602

REACTIONS (8)
  - ASTHENIA [None]
  - CHILLS [None]
  - DECREASED APPETITE [None]
  - HAEMOLYSIS [None]
  - PYREXIA [None]
  - RASH [None]
  - SKIN EXFOLIATION [None]
  - VOMITING [None]
